FAERS Safety Report 16318453 (Version 1)
Quarter: 2019Q2

REPORT INFORMATION
  Report Type: Spontaneous
  Country: US (occurrence: US)
  Receive Date: 20190516
  Receipt Date: 20190516
  Transmission Date: 20190711
  Serious: Yes (Hospitalization, Other)
  Sender: FDA-Public Use
  Company Number: US-ACCORD-127813

PATIENT
  Age: 54 Year
  Sex: Male

DRUGS (6)
  1. FLUOROURACIL. [Suspect]
     Active Substance: FLUOROURACIL
     Indication: METASTASES TO LUNG
  2. OXALIPLATIN. [Suspect]
     Active Substance: OXALIPLATIN
     Indication: METASTASES TO SPINE
  3. FLUOROURACIL. [Suspect]
     Active Substance: FLUOROURACIL
     Indication: METASTASES TO ABDOMINAL CAVITY
  4. OXALIPLATIN. [Suspect]
     Active Substance: OXALIPLATIN
     Indication: METASTASES TO ABDOMINAL CAVITY
  5. FOLINIC ACID [Suspect]
     Active Substance: LEUCOVORIN
     Indication: METASTASES TO ABDOMINAL CAVITY
  6. FOLINIC ACID [Suspect]
     Active Substance: LEUCOVORIN
     Indication: METASTASES TO SPINE

REACTIONS (12)
  - Off label use [Unknown]
  - Odynophagia [Recovering/Resolving]
  - Mucosal toxicity [Recovering/Resolving]
  - Weight decreased [Recovering/Resolving]
  - Dysphonia [Recovering/Resolving]
  - Skin exfoliation [Recovering/Resolving]
  - Dysphagia [Recovering/Resolving]
  - Erythema [Recovering/Resolving]
  - Septic shock [Recovering/Resolving]
  - Recall phenomenon [Recovering/Resolving]
  - Neutropenia [Recovering/Resolving]
  - Oesophageal candidiasis [Recovered/Resolved]
